FAERS Safety Report 7615605-4 (Version None)
Quarter: 2011Q3

REPORT INFORMATION
  Report Type: 
  Country: None (occurrence: None)
  Receive Date: 20110708
  Receipt Date: 20110624
  Transmission Date: 20111222
  Serious: Yes (Hospitalization, Other)
  Sender: FDA-Public Use
  Company Number: 20110483

PATIENT
  Age: 44 Year
  Sex: Female

DRUGS (1)
  1. DEXAMETHASONE SODIUM PHOSPHATE [Suspect]
     Indication: ADRENAL INSUFFICIENCY
     Dosage: INTRAMUSCULAR
     Route: 030

REACTIONS (5)
  - THROMBOSIS [None]
  - PRODUCT QUALITY ISSUE [None]
  - MUSCULOSKELETAL DISCOMFORT [None]
  - DRUG INEFFECTIVE [None]
  - SYNCOPE [None]
